APPROVED DRUG PRODUCT: EFAVIRENZ
Active Ingredient: EFAVIRENZ
Strength: 600MG
Dosage Form/Route: TABLET;ORAL
Application: A091471 | Product #001
Applicant: MYLAN PHARMACEUTICALS INC
Approved: Feb 17, 2016 | RLD: No | RS: No | Type: DISCN